FAERS Safety Report 7584682-1 (Version None)
Quarter: 2011Q2

REPORT INFORMATION
  Report Type: 
  Country: None (occurrence: None)
  Receive Date: 20110630
  Receipt Date: 20110629
  Transmission Date: 20111010
  Serious: Yes (Other)
  Sender: FDA-Public Use
  Company Number: EG-PFIZER INC-2011145387

PATIENT
  Age: 66 Year
  Sex: Male

DRUGS (4)
  1. DAFLON [Concomitant]
     Indication: HAEMORRHOIDS
     Dosage: 500 MG, 2X/DAY
     Route: 048
  2. ISOSORBIDE DINITRATE [Suspect]
     Dosage: 5 MG, 1X/DAY
     Route: 048
  3. CARDURA [Suspect]
     Indication: BENIGN PROSTATIC HYPERPLASIA
     Dosage: 4 MG, 1X/DAY
     Route: 048
     Dates: end: 20110601
  4. PROCTO-GLYVENOL [Concomitant]
     Indication: HAEMORRHOIDS
     Dosage: UNK
     Route: 061

REACTIONS (1)
  - FALL [None]
